FAERS Safety Report 8274823-5 (Version None)
Quarter: 2012Q2

REPORT INFORMATION
  Report Type: 
  Country: None (occurrence: None)
  Receive Date: 20120409
  Receipt Date: 20120328
  Transmission Date: 20120825
  Serious: Yes (Hospitalization)
  Sender: FDA-Public Use
  Company Number: 2012-001296

PATIENT
  Age: 52 Year
  Sex: Female
  Weight: 58 kg

DRUGS (6)
  1. ACTONEL [Suspect]
     Indication: OSTEOPOROSIS
     Dosage: 35 MG ONCE WEEKLY, ORAL
     Route: 048
     Dates: start: 20110601
  2. OSCAL D (CALCIUM CARBONATE, COLECALCIFEROL) [Concomitant]
  3. VITAMIN D NOS (VITAMIN D NOS) [Concomitant]
  4. ACTONEL [Suspect]
     Indication: OSTEOPOROSIS
     Dosage: 150 MG ONCE MONTHLY, ORAL : 35 MG, ONCE WEEKLY, ORAL : 75 MG, 2 CD/MONTH
     Route: 048
     Dates: start: 20110601, end: 20120201
  5. ACTONEL [Suspect]
     Indication: OSTEOPOROSIS
     Dosage: 150 MG ONCE MONTHLY, ORAL : 35 MG, ONCE WEEKLY, ORAL : 75 MG, 2 CD/MONTH
     Route: 048
     Dates: start: 20110501, end: 20110501
  6. ACTONEL [Suspect]
     Indication: OSTEOPOROSIS
     Dosage: 150 MG ONCE MONTHLY, ORAL : 35 MG, ONCE WEEKLY, ORAL : 75 MG, 2 CD/MONTH
     Route: 048
     Dates: start: 20120301

REACTIONS (8)
  - INCORRECT DOSE ADMINISTERED [None]
  - DRUG DOSE OMISSION [None]
  - DIARRHOEA [None]
  - ACUTE MYOCARDIAL INFARCTION [None]
  - ABDOMINAL PAIN UPPER [None]
  - HEPATOMEGALY [None]
  - ABDOMINAL DISTENSION [None]
  - DRUG ADMINISTRATION ERROR [None]
